FAERS Safety Report 22139647 (Version 1)
Quarter: 2023Q1

REPORT INFORMATION
  Report Type: Report from Study
  Country: JP (occurrence: None)
  Receive Date: 20230327
  Receipt Date: 20230327
  Transmission Date: 20230418
  Serious: Yes (Other)
  Sender: FDA-Public Use
  Company Number: JP-Merck Healthcare KGaA-9390772

PATIENT
  Sex: Female

DRUGS (1)
  1. GONAL-F RFF [Suspect]
     Active Substance: FOLLITROPIN
     Indication: Product used for unknown indication
     Route: 058

REACTIONS (2)
  - Melaena [Unknown]
  - Abdominal pain [Unknown]
